FAERS Safety Report 23321216 (Version 8)
Quarter: 2025Q2

REPORT INFORMATION
  Report Type: Report from Study
  Country: CA (occurrence: CA)
  Receive Date: 20231220
  Receipt Date: 20250430
  Transmission Date: 20250717
  Serious: Yes (Hospitalization, Other)
  Sender: TAKEDA
  Company Number: CA-TAKEDA-2023TUS104644

PATIENT
  Sex: Female

DRUGS (3)
  1. VEDOLIZUMAB [Suspect]
     Active Substance: VEDOLIZUMAB
     Indication: Colitis ulcerative
  2. Cortiment [Concomitant]
  3. AMLODIPINE [Concomitant]
     Active Substance: AMLODIPINE BESYLATE

REACTIONS (15)
  - Splenomegaly [Unknown]
  - White blood cell count decreased [Unknown]
  - Colitis ulcerative [Unknown]
  - Immunodeficiency [Unknown]
  - Arthropod bite [Not Recovered/Not Resolved]
  - Platelet count decreased [Unknown]
  - Diarrhoea [Unknown]
  - Frequent bowel movements [Unknown]
  - Weight decreased [Unknown]
  - Hypophagia [Unknown]
  - Bedridden [Unknown]
  - Human anaplasmosis [Unknown]
  - Decreased appetite [Unknown]
  - Fatigue [Unknown]
  - Arthritis [Unknown]
